FAERS Safety Report 21934942 (Version 1)
Quarter: 2023Q1

REPORT INFORMATION
  Report Type: Spontaneous
  Country: US (occurrence: US)
  Receive Date: 20230201
  Receipt Date: 20230201
  Transmission Date: 20230418
  Serious: Yes (Life-Threatening, Hospitalization, Other)
  Sender: FDA-Public Use
  Company Number: US-LUPIN PHARMACEUTICALS INC.-2023-00605

PATIENT
  Age: 45 Year
  Sex: Male
  Weight: 62.2 kg

DRUGS (2)
  1. AMLODIPINE [Suspect]
     Active Substance: AMLODIPINE BESYLATE
     Indication: Product used for unknown indication
     Dosage: 300 MG AMOUNT INGESTED
     Route: 048
  2. INSULIN NOS [Concomitant]
     Active Substance: INSULIN NOS
     Indication: Product used for unknown indication
     Dosage: UNK (HIGH DOSE INSULIN)
     Route: 065

REACTIONS (3)
  - Cardiogenic shock [Recovered/Resolved]
  - Overdose [Unknown]
  - Bradycardia [Unknown]
